FAERS Safety Report 13256387 (Version 1)
Quarter: 2017Q1

REPORT INFORMATION
  Report Type: Report from Study
  Country: BR (occurrence: BR)
  Receive Date: 20170221
  Receipt Date: 20170221
  Transmission Date: 20170428
  Serious: Yes (Hospitalization, Other)
  Sender: FDA-Public Use
  Company Number: BR-ALEXION PHARMACEUTICALS INC.-A201305899

PATIENT
  Age: 27 Year
  Sex: Female

DRUGS (2)
  1. SOLIRIS [Suspect]
     Active Substance: ECULIZUMAB
     Indication: PAROXYSMAL NOCTURNAL HAEMOGLOBINURIA
     Dosage: UNK
     Route: 065
     Dates: start: 20110413
  2. SOLIRIS [Suspect]
     Active Substance: ECULIZUMAB
     Dosage: UNK
     Route: 065

REACTIONS (7)
  - Haemolysis [Unknown]
  - Bone disorder [Unknown]
  - Oesophageal varices haemorrhage [Unknown]
  - Thrombosis [Unknown]
  - Platelet count decreased [Unknown]
  - Budd-Chiari syndrome [Unknown]
  - Splenectomy [Unknown]

NARRATIVE: CASE EVENT DATE: 201210
